FAERS Safety Report 21500763 (Version 1)
Quarter: 2022Q4

REPORT INFORMATION
  Report Type: Report from Study
  Country: US (occurrence: US)
  Receive Date: 20221025
  Receipt Date: 20221025
  Transmission Date: 20230113
  Serious: Yes (Other)
  Sender: FDA-Public Use
  Company Number: US-NOVARTISPH-NVSC2022US237941

PATIENT
  Age: 79 Year
  Sex: Female

DRUGS (1)
  1. ENTRESTO [Suspect]
     Active Substance: SACUBITRIL\VALSARTAN
     Indication: Product used for unknown indication
     Dosage: UNK, BID
     Route: 065

REACTIONS (7)
  - Loss of consciousness [Unknown]
  - Fall [Unknown]
  - Eye injury [Unknown]
  - Face injury [Unknown]
  - Skin discolouration [Unknown]
  - Facial pain [Unknown]
  - Dizziness [Unknown]

NARRATIVE: CASE EVENT DATE: 20220801
